FAERS Safety Report 6310736-3 (Version None)
Quarter: 2009Q3

REPORT INFORMATION
  Report Type: 
  Country: None (occurrence: None)
  Receive Date: 20090811
  Receipt Date: 20090617
  Transmission Date: 20100115
  Serious: No
  Sender: FDA-Public Use
  Company Number: 1000006882

PATIENT
  Age: 60 Year
  Sex: Female

DRUGS (7)
  1. SAVELLA [Suspect]
     Indication: FIBROMYALGIA
     Dosage: SEE IMAGE
     Route: 048
     Dates: end: 20090601
  2. SAVELLA [Suspect]
     Indication: FIBROMYALGIA
     Dosage: SEE IMAGE
     Route: 048
     Dates: start: 20090501
  3. LORTAB [Concomitant]
  4. PROMETRIUM [Concomitant]
  5. SEROQUEL [Concomitant]
  6. ARMOUR [Concomitant]
  7. CLONAZEPAM [Concomitant]

REACTIONS (1)
  - HYPOGLYCAEMIA [None]
